FAERS Safety Report 22040053 (Version 2)
Quarter: 2023Q2

REPORT INFORMATION
  Report Type: Spontaneous
  Country: US (occurrence: US)
  Receive Date: 20230227
  Receipt Date: 20230407
  Transmission Date: 20230721
  Serious: No
  Sender: FDA-Public Use
  Company Number: US-PFIZER INC-202300082955

PATIENT
  Age: 52 Year
  Sex: Female

DRUGS (1)
  1. PAXLOVID [Suspect]
     Active Substance: NIRMATRELVIR\RITONAVIR
     Indication: COVID-19 treatment
     Dosage: UNK
     Dates: start: 20230212, end: 20230217

REACTIONS (4)
  - Rhinorrhoea [Recovering/Resolving]
  - Sneezing [Recovering/Resolving]
  - Sinusitis [Recovering/Resolving]
  - Ageusia [Recovering/Resolving]

NARRATIVE: CASE EVENT DATE: 20230221
